FAERS Safety Report 6724882-3 (Version None)
Quarter: 2010Q2

REPORT INFORMATION
  Report Type: 
  Country: None (occurrence: None)
  Receive Date: 20100513
  Receipt Date: 20100513
  Transmission Date: 20101027
  Serious: Yes (Death)
  Sender: FDA-Public Use
  Company Number: None

PATIENT
  Age: 70 Year
  Sex: Male

DRUGS (11)
  1. REVLIMID [Suspect]
     Indication: NON-HODGKIN'S LYMPHOMA
     Dosage: 15MG DAILY D1-21 ORALLY
     Route: 048
  2. METOPROLOL TARTRATE [Concomitant]
  3. WARFARIN SODIUM [Concomitant]
  4. ONDANSETRON [Concomitant]
  5. ZOLPIDEM [Concomitant]
  6. VICODIN [Concomitant]
  7. TRAZODONE HCL [Concomitant]
  8. FUROSEMIDE [Concomitant]
  9. OMEPRAZOLE [Concomitant]
  10. CLOPIDOGREL [Concomitant]
  11. VYTORIN [Concomitant]

REACTIONS (2)
  - DEEP VEIN THROMBOSIS [None]
  - RENAL FAILURE ACUTE [None]
